FAERS Safety Report 13563199 (Version 1)
Quarter: 2017Q2

REPORT INFORMATION
  Report Type: Other
  Country: CA (occurrence: CA)
  Receive Date: 20170519
  Receipt Date: 20170519
  Transmission Date: 20170830
  Serious: Yes (Other)
  Sender: FDA-Public Use
  Company Number: CA-APOTEX-2017AP012010

PATIENT

DRUGS (11)
  1. CELEBREX [Suspect]
     Active Substance: CELECOXIB
     Indication: PAIN
     Route: 065
  2. CESAMET [Suspect]
     Active Substance: NABILONE
     Indication: PAIN
     Dosage: 1 DF, BID
     Route: 065
  3. BOTULINUM TOXIN TYPE A [Suspect]
     Active Substance: BOTULINUM TOXIN TYPE A
     Indication: PAIN
     Dosage: TOTAL
     Route: 030
  4. OXYCONTIN [Suspect]
     Active Substance: OXYCODONE HYDROCHLORIDE
     Indication: PAIN
     Route: 065
  5. TEGRETOL [Suspect]
     Active Substance: CARBAMAZEPINE
     Indication: PAIN
     Route: 065
  6. AMITRIPTYLINE [Suspect]
     Active Substance: AMITRIPTYLINE
     Indication: PAIN
     Route: 065
  7. TORADOL [Suspect]
     Active Substance: KETOROLAC TROMETHAMINE
     Indication: PAIN
     Route: 065
  8. CODEINE SULFATE. [Suspect]
     Active Substance: CODEINE SULFATE
     Indication: PAIN
     Route: 065
  9. APO-HYDROMORPHONE [Suspect]
     Active Substance: HYDROMORPHONE
     Indication: PAIN
     Route: 048
  10. APO-FENTANYL MATRIX [Suspect]
     Active Substance: FENTANYL
     Indication: PAIN
     Dosage: 1 DF, Q.H.
     Route: 062
  11. CAFFEINE. [Suspect]
     Active Substance: CAFFEINE
     Indication: PAIN
     Dosage: 0.2 MG/M2, UNK
     Route: 065

REACTIONS (2)
  - Off label use [Unknown]
  - Drug use disorder [Unknown]
